FAERS Safety Report 19184467 (Version 1)
Quarter: 2021Q2

REPORT INFORMATION
  Report Type: Spontaneous
  Country: US (occurrence: US)
  Receive Date: 20210426
  Receipt Date: 20210426
  Transmission Date: 20210717
  Serious: No
  Sender: FDA-Public Use
  Company Number: None

PATIENT
  Age: 52 Year
  Sex: Female

DRUGS (1)
  1. GLATOPA [Suspect]
     Active Substance: GLATIRAMER ACETATE
     Indication: ILLNESS
     Route: 058
     Dates: start: 202012

REACTIONS (2)
  - Drug ineffective [None]
  - Injection site reaction [None]

NARRATIVE: CASE EVENT DATE: 202012
